FAERS Safety Report 8993386 (Version 1)
Quarter: 2013Q1

REPORT INFORMATION
  Report Type: Spontaneous
  Country: US (occurrence: US)
  Receive Date: 20130102
  Receipt Date: 20130102
  Transmission Date: 20140127
  Serious: Yes (Other)
  Sender: FDA-Public Use
  Company Number: CHPA2012US025684

PATIENT
  Sex: Male

DRUGS (2)
  1. EXCEDRIN UNKNOWN [Suspect]
     Indication: HEADACHE
     Dosage: UNK DF, UNK
     Route: 048
  2. EXCEDRIN UNKNOWN [Suspect]
     Dosage: UNK DF, UNK
     Route: 048

REACTIONS (3)
  - Oxygen consumption decreased [Recovered/Resolved]
  - Overdose [Unknown]
  - Underdose [Unknown]
